FAERS Safety Report 22226648 (Version 1)
Quarter: 2023Q2

REPORT INFORMATION
  Report Type: Spontaneous
  Country: PL (occurrence: None)
  Receive Date: 20230419
  Receipt Date: 20230419
  Transmission Date: 20230721
  Serious: Yes (Other)
  Sender: FDA-Public Use
  Company Number: PL-ROCHE-3330113

PATIENT
  Age: 38 Year
  Sex: Male

DRUGS (1)
  1. EMICIZUMAB [Suspect]
     Active Substance: EMICIZUMAB
     Indication: Haemophilia A without inhibitors
     Dosage: AT 5TH WEEK 6 MG/KG SC EVERY 4 WEEKS
     Route: 058
     Dates: start: 20170628

REACTIONS (5)
  - Head injury [Unknown]
  - Headache [Unknown]
  - Neck pain [Unknown]
  - Hypoaesthesia [Unknown]
  - Skin abrasion [Unknown]

NARRATIVE: CASE EVENT DATE: 20180724
